FAERS Safety Report 7421269-5 (Version None)
Quarter: 2011Q2

REPORT INFORMATION
  Report Type: 
  Country: None (occurrence: None)
  Receive Date: 20110418
  Receipt Date: 20110412
  Transmission Date: 20111010
  Serious: Yes (Hospitalization)
  Sender: FDA-Public Use
  Company Number: JP-MERCK-1104USA01961

PATIENT
  Sex: Female

DRUGS (2)
  1. FOSAMAX [Suspect]
     Route: 048
     Dates: start: 20110411
  2. FOSAMAX [Suspect]
     Route: 048
     Dates: start: 20090101, end: 20110301

REACTIONS (2)
  - DIZZINESS POSTURAL [None]
  - VOMITING [None]
